FAERS Safety Report 7622253-9 (Version None)
Quarter: 2011Q3

REPORT INFORMATION
  Report Type: 
  Country: None (occurrence: None)
  Receive Date: 20110720
  Receipt Date: 20110303
  Transmission Date: 20111222
  Serious: Yes (Hospitalization, Other)
  Sender: FDA-Public Use
  Company Number: US-BAYER-2010-008983

PATIENT
  Sex: Female
  Weight: 72.562 kg

DRUGS (14)
  1. CEPHALEXIN [Concomitant]
     Dosage: 500 MG, UNK
  2. NITROFURANT MACRO [Concomitant]
     Dosage: UNK
  3. YAZ [Suspect]
     Indication: ACNE
     Dosage: UNK UNK, QD
     Dates: start: 20061229
  4. YASMIN [Suspect]
     Indication: ACNE
     Dosage: UNK UNK, QD
  5. YAZ [Suspect]
     Indication: MENSTRUAL DISORDER
  6. IBUPROFEN (ADVIL) [Concomitant]
  7. DROSPIRENONE AND ETHINYL ESTRADIOL [Suspect]
     Indication: ACNE
     Dosage: UNK UNK, QD
  8. YASMIN [Suspect]
     Indication: PREMENSTRUAL SYNDROME
  9. YAZ [Suspect]
     Indication: PREMENSTRUAL SYNDROME
  10. YASMIN [Suspect]
     Indication: MENSTRUAL DISORDER
  11. YASMIN [Suspect]
     Indication: POLYCYSTIC OVARIES
  12. YAZ [Suspect]
     Indication: POLYCYSTIC OVARIES
  13. DROSPIRENONE AND ETHINYL ESTRADIOL [Suspect]
     Indication: PREMENSTRUAL SYNDROME
  14. HYDROCODONE BITARTRATE AND ACETAMINOPHEN [Concomitant]

REACTIONS (7)
  - INJURY [None]
  - HEPATIC FUNCTION ABNORMAL [None]
  - BILIARY DYSKINESIA [None]
  - INTESTINAL OBSTRUCTION [None]
  - COLITIS [None]
  - GALLBLADDER DISORDER [None]
  - PAIN [None]
